FAERS Safety Report 18406139 (Version 5)
Quarter: 2025Q1

REPORT INFORMATION
  Report Type: Report from Study
  Country: KR (occurrence: KR)
  Receive Date: 20201020
  Receipt Date: 20250212
  Transmission Date: 20250409
  Serious: Yes (Hospitalization, Other)
  Sender: JOHNSON AND JOHNSON
  Company Number: KR-JNJFOC-A-CH2019-193984

PATIENT
  Age: 54 Year
  Sex: Female
  Weight: 62 kg

DRUGS (16)
  1. UPTRAVI [Suspect]
     Active Substance: SELEXIPAG
     Indication: Pulmonary arterial hypertension
     Dosage: 400 MCG, BID
     Route: 048
     Dates: start: 20191219, end: 20191225
  2. UPTRAVI [Suspect]
     Active Substance: SELEXIPAG
     Dosage: 200 MCG, BID
     Route: 048
     Dates: start: 20191213, end: 20191218
  3. UPTRAVI [Suspect]
     Active Substance: SELEXIPAG
     Route: 048
     Dates: start: 20191219, end: 20191225
  4. MACITENTAN [Suspect]
     Active Substance: MACITENTAN
     Indication: Pulmonary arterial hypertension
     Dosage: 10 MG, QD
     Route: 048
     Dates: start: 20190705
  5. MACITENTAN [Suspect]
     Active Substance: MACITENTAN
     Indication: Pulmonary arterial hypertension
  6. MACITENTAN [Suspect]
     Active Substance: MACITENTAN
     Indication: Cor pulmonale
  7. TRACLEER [Concomitant]
     Active Substance: BOSENTAN
     Indication: Pulmonary arterial hypertension
     Dosage: 125 MG, QD
     Route: 048
     Dates: start: 20190802, end: 20190811
  8. CORDARONE [Concomitant]
     Active Substance: AMIODARONE HYDROCHLORIDE
     Dosage: 400 MG, QD
     Route: 048
     Dates: start: 20190702, end: 20190801
  9. CORDARONE [Concomitant]
     Active Substance: AMIODARONE HYDROCHLORIDE
     Dosage: 200 MG, QD
     Route: 048
     Dates: start: 20190802
  10. BISOPROLOL FUMARATE [Concomitant]
     Active Substance: BISOPROLOL FUMARATE
     Dosage: 1.25 MG, QD
     Route: 048
     Dates: start: 20190702, end: 20190811
  11. LASIX [Concomitant]
     Active Substance: FUROSEMIDE
     Indication: Oedema
     Dosage: 20.00 MG, QD
     Route: 048
     Dates: start: 20190802, end: 20190811
  12. CANRENOATE POTASSIUM [Concomitant]
     Active Substance: CANRENOATE POTASSIUM
     Indication: Oedema
     Dosage: 25.00 MG, QD
     Route: 048
     Dates: start: 20190702, end: 20190704
  13. XARELTO [Concomitant]
     Active Substance: RIVAROXABAN
     Dosage: 20.00 MG, QD
     Route: 048
     Dates: start: 20190702
  14. TORSEMIDE [Concomitant]
     Active Substance: TORSEMIDE
     Indication: Oedema
     Dosage: 5.00 MG, QD
     Route: 048
     Dates: start: 20190705, end: 20190811
  15. SILDENAFIL CITRATE [Concomitant]
     Active Substance: SILDENAFIL CITRATE
     Indication: Pulmonary arterial hypertension
     Dosage: 60 MG, QD
     Route: 048
     Dates: start: 20191226
  16. SILDENAFIL CITRATE [Concomitant]
     Active Substance: SILDENAFIL CITRATE
     Dates: start: 20191226

REACTIONS (8)
  - Palpitations [Recovered/Resolved]
  - Syncope [Recovered/Resolved]
  - Cardioversion [Recovered/Resolved]
  - Dysuria [Recovered/Resolved]
  - Dizziness [Recovered/Resolved]
  - Vomiting [Recovering/Resolving]
  - Diarrhoea [Recovering/Resolving]
  - Pain [Recovered/Resolved]

NARRATIVE: CASE EVENT DATE: 20190715
